FAERS Safety Report 9835897 (Version 1)
Quarter: 2014Q1

REPORT INFORMATION
  Report Type: Spontaneous
  Country: US (occurrence: US)
  Receive Date: 20140122
  Receipt Date: 20140122
  Transmission Date: 20141002
  Serious: Yes (Other)
  Sender: FDA-Public Use
  Company Number: US-BAXTER-2014BAX002734

PATIENT
  Age: 49 Year
  Sex: Female
  Weight: 80 kg

DRUGS (7)
  1. OSMITROL INJECTION (MANNITOL INJECTION, USP) [Suspect]
     Indication: PRODUCT USED FOR UNKNOWN INDICATION
     Dosage: 5 G/MIN
     Route: 042
  2. SEVOFLURANE, USP [Suspect]
     Indication: GENERAL ANAESTHESIA
     Route: 065
  3. THIOPENTAL [Suspect]
     Indication: ANAESTHESIA
     Route: 042
  4. LIDOCAINE [Suspect]
     Indication: ANAESTHESIA
     Route: 042
  5. FENTANYL [Suspect]
     Indication: ANAESTHESIA
     Dosage: 250 UG
     Route: 042
  6. ROCURONIUM [Suspect]
     Indication: ANAESTHESIA
     Dosage: RIGHT ANTECUBITAL 18 GAUGE CATHETER
     Route: 042
  7. REMIFENTANIL [Suspect]
     Indication: ANAESTHESIA
     Dosage: -1 MIN-1 VIA A 20 GAUGE IV CATHETER IN THE LEFT HAND
     Route: 042

REACTIONS (2)
  - Compartment syndrome [Recovered/Resolved]
  - Extravasation [Recovered/Resolved]
